FAERS Safety Report 5558054-5 (Version None)
Quarter: 2007Q4

REPORT INFORMATION
  Report Type: 
  Country: None (occurrence: None)
  Receive Date: 20071214
  Receipt Date: 20071129
  Transmission Date: 20080405
  Serious: Yes (Other)
  Sender: FDA-Public Use
  Company Number: NL-RANBAXY-2007US-11901

PATIENT

DRUGS (2)
  1. ISOPTIN SR [Suspect]
     Indication: ATRIAL FIBRILLATION
     Dosage: 120MG QD
     Dates: start: 19960101, end: 20030701
  2. GABAPENTIN [Concomitant]
     Indication: DRUG USE FOR UNKNOWN INDICATION
     Dosage: UNK

REACTIONS (4)
  - BURNING SENSATION [None]
  - ERYTHEMA [None]
  - ERYTHROMELALGIA [None]
  - SWELLING [None]
